FAERS Safety Report 22331810 (Version 2)
Quarter: 2024Q1

REPORT INFORMATION
  Report Type: Spontaneous
  Country: US (occurrence: US)
  Receive Date: 20230517
  Receipt Date: 20240105
  Transmission Date: 20240410
  Serious: Yes (Other)
  Sender: FDA-Public Use
  Company Number: US-PFIZER INC-PV202300086324

PATIENT
  Age: 8 Year
  Sex: Female

DRUGS (6)
  1. OXBRYTA [Suspect]
     Active Substance: VOXELOTOR
     Dosage: 600 MG, DAILY (DISSOLVED IN CLEAR LIQUID)
  2. OXBRYTA [Suspect]
     Active Substance: VOXELOTOR
     Dosage: 300 MG, 1X/DAY (1 TABLET FOR ORAL SUSPENSION)
     Route: 048
  3. HYDREA [Concomitant]
     Active Substance: HYDROXYUREA
     Dosage: UNK
  4. FOLIC ACID [Concomitant]
     Active Substance: FOLIC ACID
     Dosage: UNK
  5. MOTRIN [Concomitant]
     Active Substance: IBUPROFEN
     Dosage: UNK
  6. HYCET [HYDROCODONE BITARTRATE;PARACETAMOL] [Concomitant]
     Dosage: UNK

REACTIONS (1)
  - Adenotonsillectomy [Recovering/Resolving]

NARRATIVE: CASE EVENT DATE: 20230401
